FAERS Safety Report 23474659 (Version 1)
Quarter: 2024Q1

REPORT INFORMATION
  Report Type: Spontaneous
  Country: DE (occurrence: DE)
  Receive Date: 20240204
  Receipt Date: 20240204
  Transmission Date: 20240409
  Serious: Yes (Hospitalization, Disabling, Other)
  Sender: FDA-Public Use
  Company Number: DE-EXELIXIS-CABO-23063552

PATIENT
  Age: 62 Year
  Sex: Male
  Weight: 89.2 kg

DRUGS (10)
  1. COMETRIQ [Suspect]
     Active Substance: CABOZANTINIB S-MALATE
     Indication: Medullary thyroid cancer
     Dosage: 140 MG, QD
     Route: 048
     Dates: start: 20211005, end: 20230114
  2. UNSPECIFIED INGREDIENT [Suspect]
     Active Substance: UNSPECIFIED INGREDIENT
     Indication: Product used for unknown indication
     Dosage: UNK
  3. LEVOTHYROXINE SODIUM [Concomitant]
     Active Substance: LEVOTHYROXINE SODIUM
     Dosage: UNK
  4. Novalgin [Concomitant]
     Dosage: UNK
  5. XGEVA [Concomitant]
     Active Substance: DENOSUMAB
  6. PREGABALIN [Concomitant]
     Active Substance: PREGABALIN
  7. BUPRENORPHINE [Concomitant]
     Active Substance: BUPRENORPHINE
  8. DENOSUMAB [Concomitant]
     Active Substance: DENOSUMAB
  9. Tavor [Concomitant]
  10. OXYCODONE [Concomitant]
     Active Substance: OXYCODONE\OXYCODONE HYDROCHLORIDE

REACTIONS (4)
  - Osteonecrosis of jaw [Recovered/Resolved]
  - Metastases to lymph nodes [Unknown]
  - Metastases to liver [Unknown]
  - Metastases to bone [Unknown]

NARRATIVE: CASE EVENT DATE: 20221231
